FAERS Safety Report 8963000 (Version 5)
Quarter: 2014Q3

REPORT INFORMATION
  Report Type: Spontaneous
  Country: US (occurrence: US)
  Receive Date: 20121213
  Receipt Date: 20140826
  Transmission Date: 20150326
  Serious: Yes (Life-Threatening, Hospitalization, Other)
  Sender: FDA-Public Use
  Company Number: US-009507513-2010SP040146

PATIENT
  Sex: Female
  Weight: 70.3 kg

DRUGS (1)
  1. NUVARING [Suspect]
     Active Substance: ETHINYL ESTRADIOL\ETONOGESTREL
     Indication: CONTRACEPTION
     Dosage: AS DIRECTED (CONTINUOUS CYCLE)
     Route: 067
     Dates: start: 200804, end: 200807

REACTIONS (35)
  - Inappropriate schedule of drug administration [Unknown]
  - Dyspnoea exertional [Unknown]
  - Nausea [Recovered/Resolved]
  - Abdominal pain lower [Unknown]
  - Anogenital warts [Unknown]
  - Pharyngitis [Unknown]
  - Nasal operation [Unknown]
  - Haematemesis [Recovered/Resolved]
  - Headache [Unknown]
  - Dyspnoea [Unknown]
  - Psoriasis [Unknown]
  - Coagulopathy [Unknown]
  - Fall [Unknown]
  - Physical assault [Unknown]
  - Pulmonary hypertension [Recovered/Resolved]
  - Acne [Unknown]
  - Hypertension [Unknown]
  - Limb injury [Unknown]
  - Alopecia [Recovering/Resolving]
  - Lymphadenopathy [Unknown]
  - Apparent death [Recovered/Resolved]
  - Jaw operation [Unknown]
  - Nephrolithiasis [Unknown]
  - Chest discomfort [Recovered/Resolved]
  - Exposure during pregnancy [Unknown]
  - Polycystic ovaries [Unknown]
  - Loss of consciousness [Recovered/Resolved]
  - Pulmonary embolism [Unknown]
  - Vaginal haemorrhage [Unknown]
  - Concussion [Unknown]
  - Major depression [Unknown]
  - Head injury [Unknown]
  - Contusion [Unknown]
  - Abortion spontaneous [Unknown]
  - Rash pustular [Recovered/Resolved]

NARRATIVE: CASE EVENT DATE: 200805
